FAERS Safety Report 20608996 (Version 1)
Quarter: 2022Q1

REPORT INFORMATION
  Report Type: Spontaneous
  Country: CA (occurrence: CA)
  Receive Date: 20220317
  Receipt Date: 20220317
  Transmission Date: 20220423
  Serious: Yes (Hospitalization)
  Sender: FDA-Public Use
  Company Number: CA-TEVA-2022-CA-2016697

PATIENT
  Age: 4 Decade
  Sex: Male

DRUGS (6)
  1. FLUVOXAMINE [Interacting]
     Active Substance: FLUVOXAMINE
     Indication: Psychotic disorder
     Dosage: 200 MILLIGRAM DAILY;
     Route: 065
  2. LORAZEPAM [Suspect]
     Active Substance: LORAZEPAM
     Indication: Catatonia
     Dosage: 2 MILLIGRAM DAILY;
     Route: 065
  3. LORAZEPAM [Suspect]
     Active Substance: LORAZEPAM
     Dosage: 9 MILLIGRAM DAILY;
     Route: 065
  4. CLOZAPINE [Interacting]
     Active Substance: CLOZAPINE
     Indication: Psychotic disorder
     Dosage: 500 MILLIGRAM DAILY;
     Route: 065
  5. CLOZAPINE [Interacting]
     Active Substance: CLOZAPINE
     Indication: Psychotic disorder
     Dosage: 200 MILLIGRAM DAILY;
     Route: 065
  6. CLOZAPINE [Interacting]
     Active Substance: CLOZAPINE
     Indication: Psychotic disorder
     Dosage: 125 MILLIGRAM DAILY;
     Route: 065

REACTIONS (6)
  - Sedation [Unknown]
  - Constipation [Unknown]
  - Salivary hypersecretion [Unknown]
  - Drug interaction [Unknown]
  - Drug level increased [Unknown]
  - Drug ineffective [Unknown]
